FAERS Safety Report 21860927 (Version 2)
Quarter: 2023Q1

REPORT INFORMATION
  Report Type: Spontaneous
  Country: JP (occurrence: JP)
  Receive Date: 20230113
  Receipt Date: 20230203
  Transmission Date: 20230417
  Serious: Yes (Other)
  Sender: FDA-Public Use
  Company Number: JP-NBI-S202300003BIPI

PATIENT
  Age: 62 Year
  Sex: Male

DRUGS (9)
  1. PRAMIPEXOLE [Suspect]
     Active Substance: PRAMIPEXOLE
     Indication: Parkinson^s disease
     Route: 065
  2. PRAMIPEXOLE [Suspect]
     Active Substance: PRAMIPEXOLE
     Route: 065
  3. OPICAPONE [Suspect]
     Active Substance: OPICAPONE
     Indication: Product used for unknown indication
     Route: 065
     Dates: start: 202109
  4. SERTRALINE HYDROCHLORIDE [Concomitant]
     Active Substance: SERTRALINE HYDROCHLORIDE
     Indication: Panic disorder
     Route: 065
     Dates: start: 201904
  5. SERTRALINE HYDROCHLORIDE [Concomitant]
     Active Substance: SERTRALINE HYDROCHLORIDE
     Route: 065
  6. QUETIAPINE FUMARATE [Concomitant]
     Active Substance: QUETIAPINE FUMARATE
     Indication: Product used for unknown indication
     Route: 065
  7. QUETIAPINE FUMARATE [Concomitant]
     Active Substance: QUETIAPINE FUMARATE
     Route: 065
  8. CARBIDOPA\LEVODOPA [Concomitant]
     Active Substance: CARBIDOPA\LEVODOPA
     Indication: Product used for unknown indication
     Route: 065
  9. ENSURE [Concomitant]
     Active Substance: AMINO ACIDS\DEXTROSE\ELECTROLYTES NOS\SOYBEAN OIL\VITAMINS
     Indication: Product used for unknown indication
     Route: 065

REACTIONS (1)
  - Hallucination, visual [Recovering/Resolving]

NARRATIVE: CASE EVENT DATE: 20210901
